FAERS Safety Report 9552472 (Version 1)
Quarter: 2013Q3

REPORT INFORMATION
  Report Type: Spontaneous
  Country: US (occurrence: US)
  Receive Date: 20130925
  Receipt Date: 20130925
  Transmission Date: 20140515
  Serious: No
  Sender: FDA-Public Use
  Company Number: US-PFIZER INC-2013274056

PATIENT
  Age: 50 Year
  Sex: Female
  Weight: 64.4 kg

DRUGS (1)
  1. ESTRING [Suspect]
     Indication: ATROPHIC VULVOVAGINITIS
     Dosage: UNK
     Route: 067

REACTIONS (1)
  - Dyspareunia [Unknown]
